FAERS Safety Report 9813549 (Version 1)
Quarter: 2014Q1

REPORT INFORMATION
  Report Type: Spontaneous
  Country: US (occurrence: None)
  Receive Date: 20140109
  Receipt Date: 20140109
  Transmission Date: 20141002
  Serious: Yes (Life-Threatening)
  Sender: FDA-Public Use
  Company Number: 001653286A

PATIENT
  Age: 72 Year
  Sex: Female

DRUGS (2)
  1. SKIN BRIGHTENING DECOLLETE AND NECK TREATMENT SPF 15 [Suspect]
     Route: 023
     Dates: start: 20131227
  2. LOW DOSE ASPIRIN [Concomitant]

REACTIONS (3)
  - Pharyngeal oedema [None]
  - Throat tightness [None]
  - Dyspnoea [None]
